FAERS Safety Report 5243120-4 (Version None)
Quarter: 2007Q1

REPORT INFORMATION
  Report Type: 
  Country: None (occurrence: None)
  Receive Date: 20070221
  Receipt Date: 20070212
  Transmission Date: 20070707
  Serious: Yes (Hospitalization)
  Sender: FDA-Public Use
  Company Number: BE-ABBOTT-07P-013-0357919-00

PATIENT
  Sex: Male
  Weight: 64 kg

DRUGS (11)
  1. HUMIRA [Suspect]
     Indication: RHEUMATOID ARTHRITIS
     Dates: start: 20040812
  2. PANTOPRAZOLE SODIUM [Concomitant]
     Indication: DRUG USE FOR UNKNOWN INDICATION
  3. OMNIBIONTA INTEGRAL [Concomitant]
     Indication: DRUG USE FOR UNKNOWN INDICATION
  4. LISINOPRIL [Concomitant]
     Indication: DRUG USE FOR UNKNOWN INDICATION
  5. CORUNO [Concomitant]
     Indication: DRUG USE FOR UNKNOWN INDICATION
  6. METOPROLOL SUCCINATE [Concomitant]
     Indication: DRUG USE FOR UNKNOWN INDICATION
  7. FOLIC ACID [Concomitant]
     Indication: DRUG USE FOR UNKNOWN INDICATION
  8. METHOTREXATE [Concomitant]
     Indication: RHEUMATOID ARTHRITIS
     Dates: end: 20060401
  9. METHOTREXATE [Concomitant]
     Dates: start: 20060601
  10. ALENDRONATE SODIUM [Concomitant]
     Indication: DRUG USE FOR UNKNOWN INDICATION
  11. FOLIC ACID [Concomitant]
     Indication: RHEUMATOID ARTHRITIS

REACTIONS (12)
  - ASTHENIA [None]
  - CHOLANGITIS [None]
  - CHOLELITHIASIS [None]
  - CONFUSIONAL STATE [None]
  - GASTROINTESTINAL DISORDER [None]
  - HYPOALBUMINAEMIA [None]
  - INGUINAL HERNIA [None]
  - MUSCULAR WEAKNESS [None]
  - OESOPHAGITIS [None]
  - ORTHOSTATIC HYPOTENSION [None]
  - PERITONITIS [None]
  - PULMONARY OEDEMA [None]
